FAERS Safety Report 14860426 (Version 1)
Quarter: 2018Q2

REPORT INFORMATION
  Report Type: Not Available
  Country: US (occurrence: US)
  Receive Date: 20180508
  Receipt Date: 20180508
  Transmission Date: 20180711
  Serious: No
  Sender: FDA-Public Use
  Company Number: US-FOUNDATIONCONSUMERHC-2018-US-001769

PATIENT
  Age: 19 Year
  Sex: Female
  Weight: 47.63 kg

DRUGS (2)
  1. AFTERA [Suspect]
     Active Substance: LEVONORGESTREL
     Dosage: 1 TAB PO
     Route: 048
     Dates: start: 20180128, end: 20180128
  2. PLAN B ONE-STEP [Suspect]
     Active Substance: LEVONORGESTREL
     Dosage: 1 TAB PO
     Route: 048
     Dates: start: 201707, end: 201707

REACTIONS (6)
  - Nausea [Not Recovered/Not Resolved]
  - Headache [Recovered/Resolved]
  - Menstruation delayed [Recovered/Resolved]
  - Mood swings [Recovered/Resolved]
  - Menstrual disorder [Recovered/Resolved]
  - Abdominal pain [Recovered/Resolved]

NARRATIVE: CASE EVENT DATE: 201707
